FAERS Safety Report 22644988 (Version 1)
Quarter: 2023Q2

REPORT INFORMATION
  Report Type: Spontaneous
  Country: US (occurrence: None)
  Receive Date: 20230625
  Receipt Date: 20230625
  Transmission Date: 20230721
  Serious: Yes (Other)
  Sender: FDA-Public Use
  Company Number: None

PATIENT
  Age: 72 Year
  Sex: Male
  Weight: 106.2 kg

DRUGS (6)
  1. ENTRESTO [Suspect]
     Active Substance: SACUBITRIL\VALSARTAN
     Indication: Cardiac failure chronic
     Dosage: OTHER QUANTITY : 1 TABLET(S);?FREQUENCY : TWICE A DAY;?
     Route: 048
     Dates: start: 20230613, end: 20230620
  2. ATORVASTATIN [Concomitant]
     Active Substance: ATORVASTATIN
  3. METOPROLOL SUCCINATE [Concomitant]
     Active Substance: METOPROLOL SUCCINATE
  4. CLOPIDOGREL [Concomitant]
     Active Substance: CLOPIDOGREL BISULFATE
  5. LOSARTAN [Concomitant]
     Active Substance: LOSARTAN
  6. Nature^s Bounty Immune [Concomitant]

REACTIONS (12)
  - Headache [None]
  - Nausea [None]
  - Fatigue [None]
  - Decreased appetite [None]
  - Fatigue [None]
  - Hypersomnia [None]
  - Muscular weakness [None]
  - Blood pressure increased [None]
  - Muscle spasms [None]
  - Muscle spasms [None]
  - Muscle spasms [None]
  - Blood urine [None]

NARRATIVE: CASE EVENT DATE: 20230620
